FAERS Safety Report 13899081 (Version 3)
Quarter: 2018Q2

REPORT INFORMATION
  Report Type: Spontaneous
  Country: US (occurrence: US)
  Receive Date: 20170824
  Receipt Date: 20180422
  Transmission Date: 20180711
  Serious: Yes (Hospitalization, Other)
  Sender: FDA-Public Use
  Company Number: US-BRISTOL-MYERS SQUIBB COMPANY-BMS-2017-074216

PATIENT
  Age: 67 Year
  Sex: Male
  Weight: 124.9 kg

DRUGS (4)
  1. YERVOY [Suspect]
     Active Substance: IPILIMUMAB
     Indication: MALIGNANT MELANOMA
     Dosage: 1250 MG, Q3WK X 4
     Route: 042
     Dates: start: 20170322
  2. YERVOY [Suspect]
     Active Substance: IPILIMUMAB
     Indication: PRODUCT USED FOR UNKNOWN INDICATION
     Dosage: 1250 MG, Q3MO
     Route: 042
     Dates: end: 20170815
  3. WARFARIN [Concomitant]
     Active Substance: WARFARIN
     Indication: DEEP VEIN THROMBOSIS
     Dosage: 10 MG, QD EXCEPT TUESDAY AND THURSDAY
     Route: 048
     Dates: start: 20110801
  4. EMTRICITABINE W/RILPIVIRINE/TENOFOVIR [Concomitant]
     Active Substance: EMTRICITABINE\RILPIVIRINE\TENOFOVIR DISOPROXIL FUMARATE
     Indication: HIV INFECTION
     Dosage: UNK
     Route: 048
     Dates: start: 20151014, end: 20171228

REACTIONS (4)
  - Hepatitis B DNA increased [Unknown]
  - Prescribed overdose [Unknown]
  - Blood HIV RNA increased [Recovering/Resolving]
  - CD4 lymphocytes increased [Unknown]

NARRATIVE: CASE EVENT DATE: 20170322
